FAERS Safety Report 15380595 (Version 2)
Quarter: 2018Q3

REPORT INFORMATION
  Report Type: Report from Study
  Country: US (occurrence: US)
  Receive Date: 20180913
  Receipt Date: 20180920
  Transmission Date: 20181010
  Serious: Yes (Death)
  Sender: FDA-Public Use
  Company Number: US-HLSUS-2018-US-000866

PATIENT
  Age: 59 Year
  Sex: Male

DRUGS (5)
  1. HALDOL DECANOATE [Concomitant]
     Active Substance: HALOPERIDOL DECANOATE
     Indication: PSYCHOTIC DISORDER
     Dosage: 100MG
     Route: 030
     Dates: start: 20170520, end: 20180814
  2. LORAZEPAM. [Concomitant]
     Active Substance: LORAZEPAM
     Indication: ANXIETY
     Dosage: 0.5MG BID
     Route: 048
     Dates: start: 20170520, end: 20180814
  3. CLOZARIL [Suspect]
     Active Substance: CLOZAPINE
     Indication: SCHIZOAFFECTIVE DISORDER BIPOLAR TYPE
     Dosage: 100MG QHS
     Route: 048
     Dates: start: 20170520, end: 20180814
  4. RISPERIDONE. [Concomitant]
     Active Substance: RISPERIDONE
     Indication: PSYCHOTIC DISORDER
     Dosage: 2MG BID
     Route: 048
     Dates: start: 20170520, end: 20180814
  5. COGENTIN [Concomitant]
     Active Substance: BENZTROPINE MESYLATE
     Indication: DROOLING
     Dosage: 1MG BID
     Route: 048
     Dates: start: 20170520, end: 20180814

REACTIONS (2)
  - Death [Fatal]
  - Neutrophil count increased [Unknown]

NARRATIVE: CASE EVENT DATE: 20180726
